FAERS Safety Report 18782320 (Version 1)
Quarter: 2021Q1

REPORT INFORMATION
  Report Type: Spontaneous
  Country: US (occurrence: US)
  Receive Date: 20210125
  Receipt Date: 20210125
  Transmission Date: 20210419
  Serious: No
  Sender: FDA-Public Use
  Company Number: US-ALLERGAN-2002552US

PATIENT
  Sex: Female
  Weight: 55.33 kg

DRUGS (1)
  1. RESTASIS [Suspect]
     Active Substance: CYCLOSPORINE
     Indication: DRY EYE
     Dosage: ACTUAL: THE WHOLE VIAL BETWEEN THE TWO EYES
     Dates: start: 20200115

REACTIONS (7)
  - Hyperhidrosis [Unknown]
  - Blood pressure increased [Unknown]
  - Tremor [Unknown]
  - Eye symptom [Unknown]
  - Incorrect dose administered [Unknown]
  - Chills [Unknown]
  - Muscular weakness [Unknown]
